FAERS Safety Report 10488086 (Version 1)
Quarter: 2014Q4

REPORT INFORMATION
  Report Type: Spontaneous
  Country: US (occurrence: US)
  Receive Date: 20141001
  Receipt Date: 20141001
  Transmission Date: 20150528
  Serious: No
  Sender: FDA-Public Use
  Company Number: US-009507513-1409USA007191

PATIENT
  Age: 70 Year
  Sex: Female

DRUGS (1)
  1. ZETIA [Suspect]
     Active Substance: EZETIMIBE
     Indication: BLOOD CHOLESTEROL
     Dosage: 1 DF, QD
     Route: 048
     Dates: start: 201405

REACTIONS (3)
  - Muscle spasms [Unknown]
  - Paraesthesia [Unknown]
  - Syncope [Unknown]

NARRATIVE: CASE EVENT DATE: 201405
